FAERS Safety Report 24211320 (Version 2)
Quarter: 2025Q2

REPORT INFORMATION
  Report Type: Spontaneous
  Country: US (occurrence: US)
  Receive Date: 20240814
  Receipt Date: 20250422
  Transmission Date: 20250716
  Serious: No
  Sender: PFIZER
  Company Number: US-PFIZER INC-PV202400104671

PATIENT
  Age: 59 Year
  Weight: 90.72 kg

DRUGS (1)
  1. PAXLOVID [Suspect]
     Active Substance: NIRMATRELVIR\RITONAVIR
     Indication: COVID-19 treatment

REACTIONS (6)
  - Diarrhoea [Unknown]
  - Nasal congestion [Unknown]
  - Pain in extremity [Unknown]
  - Vein disorder [Unknown]
  - Glucose tolerance impaired [Unknown]
  - Dysstasia [Unknown]
